FAERS Safety Report 10486008 (Version 2)
Quarter: 2017Q1

REPORT INFORMATION
  Report Type: Spontaneous
  Country: US (occurrence: US)
  Receive Date: 20141001
  Receipt Date: 20170322
  Transmission Date: 20170428
  Serious: Yes (Other)
  Sender: FDA-Public Use
  Company Number: US-AUROBINDO-AUR-APU-2014-10243

PATIENT
  Age: 67 Year
  Sex: Male
  Weight: 97.5 kg

DRUGS (3)
  1. PREDNISONE. [Concomitant]
     Active Substance: PREDNISONE
     Indication: NIGHT SWEATS
  2. LEVOFLOXACIN TABLETS 750MG [Suspect]
     Active Substance: LEVOFLOXACIN
     Indication: PNEUMONIA BACTERIAL
     Dosage: 750 MG, ONCE A DAY
     Route: 048
     Dates: start: 20140714, end: 20140723
  3. PREDNISONE. [Concomitant]
     Active Substance: PREDNISONE
     Indication: CHILLS
     Dosage: 50 MG, UNK
     Route: 065

REACTIONS (7)
  - Joint swelling [Recovered/Resolved]
  - Peripheral swelling [Recovered/Resolved]
  - Chills [Recovered/Resolved]
  - Night sweats [Recovered/Resolved]
  - Fatigue [Recovered/Resolved]
  - Asthenia [Recovered/Resolved]
  - Arthralgia [Recovered/Resolved]

NARRATIVE: CASE EVENT DATE: 20140708
